FAERS Safety Report 22528421 (Version 2)
Quarter: 2023Q2

REPORT INFORMATION
  Report Type: Spontaneous
  Country: US (occurrence: US)
  Receive Date: 20230607
  Receipt Date: 20230623
  Transmission Date: 20230722
  Serious: Yes (Other)
  Sender: FDA-Public Use
  Company Number: US-BRISTOL-MYERS SQUIBB COMPANY-2023-078862

PATIENT
  Age: 66 Year
  Sex: Female

DRUGS (1)
  1. ORENCIA [Suspect]
     Active Substance: ABATACEPT
     Indication: Rheumatoid arthritis
     Dosage: VIAL?FREQUENCY: ON WEEK 4, THEN EVERY 4 WEEKS THEREAFTER
     Route: 042
     Dates: start: 20221003

REACTIONS (5)
  - Impaired gastric emptying [Unknown]
  - Diarrhoea [Unknown]
  - Weight abnormal [Unknown]
  - Blood pressure increased [Unknown]
  - Loss of consciousness [Unknown]
